FAERS Safety Report 4580785-4 (Version None)
Quarter: 2005Q1

REPORT INFORMATION
  Report Type: 
  Country: None (occurrence: None)
  Receive Date: 20050214
  Receipt Date: 20040601
  Transmission Date: 20050727
  Serious: No
  Sender: FDA-Public Use
  Company Number: 2122

PATIENT
  Age: 76 Year
  Sex: Female

DRUGS (2)
  1. LAMICTAL [Suspect]
     Indication: NEUROPATHIC PAIN
     Dosage: 100MG PER DAY
     Route: 048
  2. LOMOTIL [Suspect]
     Route: 065

REACTIONS (3)
  - CONSTIPATION [None]
  - MEDICATION ERROR [None]
  - NEUROPATHIC PAIN [None]
